FAERS Safety Report 24110493 (Version 2)
Quarter: 2024Q3

REPORT INFORMATION
  Report Type: Spontaneous
  Country: US (occurrence: US)
  Receive Date: 20240718
  Receipt Date: 20240722
  Transmission Date: 20241017
  Serious: Yes (Hospitalization, Disabling, Other)
  Sender: PFIZER
  Company Number: US-PFIZER INC-202400216295

PATIENT
  Sex: Female

DRUGS (1)
  1. TIVDAK [Suspect]
     Active Substance: TISOTUMAB VEDOTIN-TFTV
     Indication: Cervix carcinoma
     Dosage: 2 MG PER KIL
     Dates: start: 20240709

REACTIONS (2)
  - Neuropathy peripheral [Unknown]
  - Gait disturbance [Unknown]

NARRATIVE: CASE EVENT DATE: 20240709
